FAERS Safety Report 7288237-8 (Version None)
Quarter: 2011Q1

REPORT INFORMATION
  Report Type: 
  Country: None (occurrence: None)
  Receive Date: 20110208
  Receipt Date: 20110208
  Transmission Date: 20110831
  Serious: No
  Sender: FDA-Public Use
  Company Number: None

PATIENT
  Sex: Female
  Weight: 77 kg

DRUGS (2)
  1. DULOXETINE HYDROCHLORIDE [Suspect]
     Dosage: 30 MG
  2. ULTRAM [Concomitant]

REACTIONS (1)
  - RASH PRURITIC [None]
